FAERS Safety Report 10355698 (Version 2)
Quarter: 2014Q3

REPORT INFORMATION
  Report Type: Report from Study
  Country: NL (occurrence: NL)
  Receive Date: 20140731
  Receipt Date: 20140731
  Transmission Date: 20150326
  Serious: Yes (Hospitalization)
  Sender: FDA-Public Use
  Company Number: NL-ABBVIE-13P-114-1043243-00

PATIENT
  Age: 85 Year
  Sex: Male
  Weight: 80 kg

DRUGS (3)
  1. LUCRIN DEPOT [Suspect]
     Active Substance: LEUPROLIDE ACETATE
     Indication: PROSTATE CANCER
     Route: 058
     Dates: start: 20121108, end: 201401
  2. LUCRIN DEPOT [Suspect]
     Active Substance: LEUPROLIDE ACETATE
     Route: 058
     Dates: start: 20140721
  3. LOSARTAN [Concomitant]
     Active Substance: LOSARTAN
     Indication: HYPERTENSION
     Route: 048
     Dates: start: 2010

REACTIONS (3)
  - Hot flush [Not Recovered/Not Resolved]
  - Heart valve replacement [Recovered/Resolved]
  - Hair growth abnormal [Recovered/Resolved]

NARRATIVE: CASE EVENT DATE: 201212
